FAERS Safety Report 7150146-2 (Version None)
Quarter: 2010Q4

REPORT INFORMATION
  Report Type: 
  Country: None (occurrence: None)
  Receive Date: 20101207
  Receipt Date: 20101207
  Transmission Date: 20110411
  Serious: Yes (Hospitalization)
  Sender: FDA-Public Use
  Company Number: None

PATIENT
  Sex: Female
  Weight: 52.1637 kg

DRUGS (2)
  1. RITUXIMAB [Suspect]
     Indication: NON-HODGKIN'S LYMPHOMA
     Dosage: 560 MG EVERY 3 WEEKS IV DRIP
     Route: 041
     Dates: start: 20101012, end: 20101012
  2. DOXORUBICIN [Suspect]
     Indication: NON-HODGKIN'S LYMPHOMA
     Dosage: 77 MG EVERY 3 WEEKS IV BOLUS
     Route: 040
     Dates: start: 20101012, end: 20101012

REACTIONS (4)
  - DEHYDRATION [None]
  - DIZZINESS [None]
  - FATIGUE [None]
  - NEUTROPENIA [None]
